FAERS Safety Report 6925961-8 (Version None)
Quarter: 2010Q3

REPORT INFORMATION
  Report Type: 
  Country: None (occurrence: None)
  Receive Date: 20100816
  Receipt Date: 20100806
  Transmission Date: 20110219
  Serious: Yes (Other)
  Sender: FDA-Public Use
  Company Number: DE-PFIZER INC-2010098935

PATIENT
  Age: 75 Year
  Sex: Female

DRUGS (1)
  1. SORTIS [Suspect]
     Dosage: 20 MG, UNK
     Dates: start: 20070101

REACTIONS (3)
  - HAEMOGLOBIN DECREASED [None]
  - MALAISE [None]
  - MUSCULOSKELETAL STIFFNESS [None]
